FAERS Safety Report 20758962 (Version 1)
Quarter: 2022Q2

REPORT INFORMATION
  Report Type: Spontaneous
  Country: US (occurrence: US)
  Receive Date: 20220427
  Receipt Date: 20220427
  Transmission Date: 20220720
  Serious: No
  Sender: FDA-Public Use
  Company Number: US-PFIZER INC-202101471874

PATIENT
  Age: 42 Year
  Sex: Female

DRUGS (2)
  1. BRAFTOVI [Suspect]
     Active Substance: ENCORAFENIB
     Indication: Metastases to meninges
     Dosage: UNK
     Dates: start: 201807
  2. MEKTOVI [Suspect]
     Active Substance: BINIMETINIB
     Indication: Metastases to meninges
     Dosage: UNK
     Dates: start: 201807

REACTIONS (2)
  - Neoplasm progression [Unknown]
  - Off label use [Unknown]

NARRATIVE: CASE EVENT DATE: 20210901
